FAERS Safety Report 16747697 (Version 1)
Quarter: 2019Q3

REPORT INFORMATION
  Report Type: Spontaneous
  Country: FR (occurrence: FR)
  Receive Date: 20190827
  Receipt Date: 20190827
  Transmission Date: 20191005
  Serious: Yes (Disabling)
  Sender: FDA-Public Use
  Company Number: FR-TEVA-2019-FR-1096520

PATIENT
  Age: 22 Year
  Sex: Male

DRUGS (3)
  1. DIHYDROCODEINE [Suspect]
     Active Substance: DIHYDROCODEINE
     Route: 065
  2. COCAINE [Suspect]
     Active Substance: COCAINE
     Route: 065
  3. HYDROXYZINE (CHLORHYDRATE D) [Suspect]
     Active Substance: HYDROXYZINE HYDROCHLORIDE
     Route: 065

REACTIONS (1)
  - Chemical submission [Recovered/Resolved with Sequelae]

NARRATIVE: CASE EVENT DATE: 20180806
